FAERS Safety Report 7807985-1 (Version None)
Quarter: 2011Q4

REPORT INFORMATION
  Report Type: 
  Country: None (occurrence: None)
  Receive Date: 20111011
  Receipt Date: 20111011
  Transmission Date: 20120403
  Serious: Yes (Other)
  Sender: FDA-Public Use
  Company Number: None

PATIENT
  Age: 74 Year
  Sex: Male
  Weight: 77.11 kg

DRUGS (1)
  1. PRADAXA [Suspect]
     Indication: COAGULOPATHY
     Dates: start: 20110101, end: 20111010

REACTIONS (1)
  - GASTROOESOPHAGEAL REFLUX DISEASE [None]
